FAERS Safety Report 10057400 (Version 2)
Quarter: 2014Q2

REPORT INFORMATION
  Report Type: Spontaneous
  Country: JP (occurrence: JP)
  Receive Date: 20140403
  Receipt Date: 20140414
  Transmission Date: 20141212
  Serious: Yes (Hospitalization)
  Sender: FDA-Public Use
  Company Number: JP-KOWA-2014S1000366

PATIENT
  Age: 84 Year
  Sex: Female
  Weight: 41 kg

DRUGS (5)
  1. LIVALO [Suspect]
     Indication: HYPERCHOLESTEROLAEMIA
     Route: 048
     Dates: start: 20140304, end: 20140318
  2. NICERGOLINE [Concomitant]
     Indication: CEREBRAL INFARCTION
     Route: 048
     Dates: start: 20111011, end: 20140317
  3. NICERGOLINE [Concomitant]
     Indication: CEREBRAL ARTERIOSCLEROSIS
     Route: 048
     Dates: start: 20111011, end: 20140317
  4. TERNELIN [Concomitant]
     Indication: CERVICOBRACHIAL SYNDROME
     Route: 048
     Dates: start: 20120910, end: 20140317
  5. ARICEPT [Concomitant]
     Indication: DEMENTIA ALZHEIMER^S TYPE
     Route: 048
     Dates: start: 20111011, end: 20140317

REACTIONS (1)
  - Jaundice [Not Recovered/Not Resolved]
